FAERS Safety Report 23958895 (Version 2)
Quarter: 2024Q3

REPORT INFORMATION
  Report Type: Report from Study
  Country: US (occurrence: US)
  Receive Date: 20240611
  Receipt Date: 20240711
  Transmission Date: 20241017
  Serious: Yes (Death)
  Sender: ABBVIE
  Company Number: US-ABBVIE-5793950

PATIENT
  Age: 74 Year
  Sex: Male

DRUGS (12)
  1. VENCLEXTA [Suspect]
     Active Substance: VENETOCLAX
     Indication: Chronic lymphocytic leukaemia
     Dosage: TAKE 8 TABLETS (400 MG TOTAL) BY MOUTH DAILY. TAKE AT THE SAME TIME EVERY DAY WITH ? FOOD AND A G...
     Route: 048
  2. VENCLEXTA [Suspect]
     Active Substance: VENETOCLAX
     Indication: Chronic lymphocytic leukaemia
     Route: 048
  3. VENCLEXTA [Suspect]
     Active Substance: VENETOCLAX
     Indication: Chronic lymphocytic leukaemia
     Dosage: TAKE 8 TABLET(S) BY MOUTH (400MG) DAILY AT THE SAME TIME EVERYY DAY?WITH FOOD AND A GLASS OF WATE...
     Route: 048
  4. VENCLEXTA [Suspect]
     Active Substance: VENETOCLAX
     Indication: Chronic lymphocytic leukaemia
     Dosage: TAKE 8 TABLET(S) BY MOUTH (400MG) DAILY TAKE AT THE SAME TIME EVERY DAY WITH FOOD AND A GLASS OF ...
     Route: 048
  5. VENCLEXTA [Suspect]
     Active Substance: VENETOCLAX
     Indication: Chronic lymphocytic leukaemia
     Dosage: 50 MG WALLET (7 TABLETS)
     Route: 048
  6. RITUXAN [Suspect]
     Active Substance: RITUXIMAB
     Indication: Product used for unknown indication
     Route: 058
  7. MABTHERA [Concomitant]
     Active Substance: RITUXIMAB
     Indication: Lymphocytic leukaemia
     Route: 065
  8. NEURONTIN [Concomitant]
     Active Substance: GABAPENTIN
     Indication: Product used for unknown indication
     Route: 048
     Dates: start: 20201213
  9. CELEBREX [Concomitant]
     Active Substance: CELECOXIB
     Indication: Pain
     Dosage: TAKE 1 CAPSULE BY MOUTH EVERY DAY AS NEEDED FOR PAIN
     Route: 048
     Dates: start: 20210915
  10. ZESTRIL [Concomitant]
     Active Substance: LISINOPRIL
     Indication: Product used for unknown indication
     Dosage: TAKE 1 TABLET BY MOUTH ONCE DAILY FOR 90 DAYS
     Route: 048
     Dates: start: 20201211
  11. ROXICODONE [Concomitant]
     Active Substance: OXYCODONE HYDROCHLORIDE
     Indication: Product used for unknown indication
     Dosage: TAKE 1 TABLET
     Route: 048
  12. XYLOCAINE [Concomitant]
     Active Substance: LIDOCAINE HYDROCHLORIDE\LIDOCAINE HYDROCHLORIDE ANHYDROUS
     Indication: Product used for unknown indication
     Dosage: APPLY TOPICALLY AS NEEDED
     Route: 061

REACTIONS (1)
  - Death [Fatal]

NARRATIVE: CASE EVENT DATE: 20240413
